FAERS Safety Report 22073102 (Version 1)
Quarter: 2023Q1

REPORT INFORMATION
  Report Type: Spontaneous
  Country: CN (occurrence: CN)
  Receive Date: 20230308
  Receipt Date: 20230308
  Transmission Date: 20230418
  Serious: Yes (Hospitalization)
  Sender: FDA-Public Use
  Company Number: CN-HALEON-CNCH2023APC009478

PATIENT

DRUGS (3)
  1. IBUPROFEN [Suspect]
     Active Substance: IBUPROFEN
     Indication: Antipyresis
     Dosage: 0.3 G, BID
     Route: 048
     Dates: start: 20230217, end: 20230218
  2. IBUPROFEN [Suspect]
     Active Substance: IBUPROFEN
     Indication: Analgesic therapy
  3. BICYCLOL [Suspect]
     Active Substance: BICYCLOL
     Indication: Transaminases increased
     Dosage: 1 DF, TID
     Route: 048
     Dates: start: 202302

REACTIONS (2)
  - Transaminases increased [Recovering/Resolving]
  - Condition aggravated [Recovering/Resolving]

NARRATIVE: CASE EVENT DATE: 20230201
